FAERS Safety Report 14240097 (Version 1)
Quarter: 2017Q4

REPORT INFORMATION
  Report Type: Spontaneous
  Country: US (occurrence: US)
  Receive Date: 20171129
  Receipt Date: 20171129
  Transmission Date: 20180321
  Serious: Yes (Disabling)
  Sender: FDA-Public Use
  Company Number: None

PATIENT
  Age: 69 Year
  Sex: Female
  Weight: 68.4 kg

DRUGS (9)
  1. VITAMIN D3 [Concomitant]
     Active Substance: CHOLECALCIFEROL
  2. MAGNESIUM [Concomitant]
     Active Substance: MAGNESIUM
  3. LEVOFLOXACIN. [Suspect]
     Active Substance: LEVOFLOXACIN
     Indication: SINUSITIS
     Dosage: ?          QUANTITY:1 TABLET(S);?
     Route: 048
     Dates: start: 20170831, end: 20170913
  4. VITAFUSION WOMENS MULTIVITAMIN [Concomitant]
  5. PAROXETINE. [Concomitant]
     Active Substance: PAROXETINE
  6. VITAMIN C [Concomitant]
     Active Substance: ASCORBIC ACID
  7. VITAMIN B12 [Concomitant]
     Active Substance: CYANOCOBALAMIN
  8. COQ10 [Concomitant]
     Active Substance: UBIDECARENONE
  9. TURMERIC [Concomitant]
     Active Substance: HERBALS\TURMERIC

REACTIONS (10)
  - Movement disorder [None]
  - Impaired driving ability [None]
  - Arthralgia [None]
  - Tendon pain [None]
  - Vision blurred [None]
  - Asthenia [None]
  - Tendon disorder [None]
  - Insomnia [None]
  - Musculoskeletal pain [None]
  - Fatigue [None]

NARRATIVE: CASE EVENT DATE: 20170914
